FAERS Safety Report 9800071 (Version 1)
Quarter: 2014Q1

REPORT INFORMATION
  Report Type: Spontaneous
  Country: US (occurrence: US)
  Receive Date: 20140106
  Receipt Date: 20140106
  Transmission Date: 20141002
  Serious: No
  Sender: FDA-Public Use
  Company Number: US-GILEAD-2010-0032494

PATIENT
  Age: 81 Year
  Sex: Female

DRUGS (10)
  1. LETAIRIS [Suspect]
     Indication: PULMONARY ARTERIAL HYPERTENSION
     Route: 048
     Dates: start: 201009
  2. FLECAINIDE [Concomitant]
  3. PROPRANOLOL [Concomitant]
  4. QUINAPRIL [Concomitant]
  5. CRESTOR [Concomitant]
  6. COUMADIN [Concomitant]
  7. OMEPRAZOLE [Concomitant]
  8. SPIRONOLACTONE [Concomitant]
  9. GABAPENTIN [Concomitant]
  10. FISH OIL [Concomitant]

REACTIONS (1)
  - Abdominal distension [Recovering/Resolving]
